FAERS Safety Report 7860161-9 (Version None)
Quarter: 2011Q4

REPORT INFORMATION
  Report Type: 
  Country: None (occurrence: None)
  Receive Date: 20111027
  Receipt Date: 20111025
  Transmission Date: 20120403
  Serious: Yes (Death, Other)
  Sender: FDA-Public Use
  Company Number: JP-BAYER-2011-104184

PATIENT
  Age: 62 Year
  Sex: Male

DRUGS (5)
  1. NEXAVAR [Suspect]
     Dosage: 200 MG, BID
     Route: 048
     Dates: start: 20110901, end: 20110905
  2. CISPLATIN [Concomitant]
     Dosage: DAILY DOSE 100 MG
     Route: 013
     Dates: start: 20110808
  3. NEXAVAR [Suspect]
     Indication: HEPATIC NEOPLASM MALIGNANT
     Dosage: 400 MG, BID
     Route: 048
     Dates: start: 20110815, end: 20110831
  4. NEXAVAR [Suspect]
     Dosage: 200 MG, BID
     Route: 048
     Dates: start: 20110909, end: 20110920
  5. NEXAVAR [Suspect]
     Dosage: 200 MG, TID
     Route: 048
     Dates: start: 20110921, end: 20110926

REACTIONS (5)
  - NEUTROPHIL COUNT DECREASED [None]
  - DISSEMINATED INTRAVASCULAR COAGULATION [None]
  - GASTRITIS HAEMORRHAGIC [None]
  - PNEUMONIA [None]
  - RENAL IMPAIRMENT [None]
